FAERS Safety Report 15287849 (Version 3)
Quarter: 2019Q1

REPORT INFORMATION
  Report Type: Spontaneous
  Country: US (occurrence: US)
  Receive Date: 20180817
  Receipt Date: 20190104
  Transmission Date: 20190417
  Serious: No
  Sender: FDA-Public Use
  Company Number: US-PFIZER INC-2018327527

PATIENT
  Age: 64 Year
  Sex: Female

DRUGS (1)
  1. ELELYSO [Suspect]
     Active Substance: TALIGLUCERASE ALFA
     Dosage: UNK, (50% OF THE DOSE/HAS HAD 4 TX)
     Dates: start: 20180524

REACTIONS (15)
  - Malaise [Unknown]
  - Dry skin [Unknown]
  - Erythema [Unknown]
  - Skin exfoliation [Unknown]
  - Arthralgia [Unknown]
  - Pruritus [Unknown]
  - Lung disorder [Unknown]
  - Pain [Unknown]
  - Fatigue [Unknown]
  - Skin fissures [Unknown]
  - Blood pressure systolic increased [Unknown]
  - Asthma [Unknown]
  - Rash [Unknown]
  - Chest pain [Unknown]
  - Hypertension [Unknown]
